FAERS Safety Report 6006173-1 (Version None)
Quarter: 2008Q4

REPORT INFORMATION
  Report Type: 
  Country: None (occurrence: None)
  Receive Date: 20081216
  Receipt Date: 20081216
  Transmission Date: 20090506
  Serious: Yes (Life-Threatening)
  Sender: FDA-Public Use
  Company Number: None

PATIENT
  Age: 65 Year
  Sex: Female
  Weight: 77.1115 kg

DRUGS (7)
  1. LIPITOR [Suspect]
     Dosage: 80 MG ONCE AT BEDTIME PO (DURATION: OVER 1 YEAR OF USE)
     Route: 048
  2. PLAVIX [Concomitant]
  3. ASPIRIN [Concomitant]
  4. METOPROLOL [Concomitant]
  5. METFORMIN HCL [Concomitant]
  6. GLIPIZIDE [Concomitant]
  7. JANUVIA [Concomitant]

REACTIONS (7)
  - ASTHENIA [None]
  - BACK PAIN [None]
  - BONE PAIN [None]
  - FALL [None]
  - FLUID INTAKE REDUCED [None]
  - NAUSEA [None]
  - PAIN IN EXTREMITY [None]
